FAERS Safety Report 4892387-0 (Version None)
Quarter: 2006Q1

REPORT INFORMATION
  Report Type: 
  Country: None (occurrence: None)
  Receive Date: 20060126
  Receipt Date: 20050816
  Transmission Date: 20060701
  Serious: Yes (Hospitalization, Other)
  Sender: FDA-Public Use
  Company Number: US-MERCK-0508USA03052

PATIENT
  Age: 72 Year
  Sex: Female
  Weight: 105 kg

DRUGS (12)
  1. ISORDIL [Concomitant]
     Route: 065
  2. VICODIN [Concomitant]
     Route: 065
  3. TRAZODONE HYDROCHLORIDE [Concomitant]
     Route: 065
  4. VIOXX [Suspect]
     Indication: OSTEOARTHRITIS
     Route: 048
     Dates: start: 19990101, end: 20041101
  5. ASPIRIN [Concomitant]
     Route: 048
  6. GLUCOPHAGE [Concomitant]
     Route: 065
  7. CAPTOPRIL [Concomitant]
     Route: 065
  8. CARDIZEM [Concomitant]
     Route: 048
  9. ZOCOR [Concomitant]
     Route: 048
  10. INSULIN [Concomitant]
     Route: 065
  11. DARVOCET-N 50 [Concomitant]
     Route: 065
  12. FOSAMAX [Concomitant]
     Route: 065

REACTIONS (26)
  - ACUTE MYOCARDIAL INFARCTION [None]
  - ARTERIOSCLEROSIS CORONARY ARTERY [None]
  - ARTERIOVENOUS FISTULA OPERATION [None]
  - ATRIOVENTRICULAR BLOCK FIRST DEGREE [None]
  - BUNDLE BRANCH BLOCK LEFT [None]
  - CARDIAC FAILURE CONGESTIVE [None]
  - CEREBROVASCULAR ACCIDENT [None]
  - CORONARY ARTERY DISEASE [None]
  - DEPRESSION [None]
  - DIFFICULTY IN WALKING [None]
  - DIZZINESS [None]
  - DYSPNOEA EXERTIONAL [None]
  - DYSSTASIA [None]
  - FOOT FRACTURE [None]
  - GROIN INFECTION [None]
  - INSOMNIA [None]
  - MENTAL STATUS CHANGES [None]
  - MITRAL VALVE INCOMPETENCE [None]
  - MYOCARDIAL INFARCTION [None]
  - PSEUDOMONAS INFECTION [None]
  - SINUSITIS [None]
  - SLEEP DISORDER [None]
  - SOMNOLENCE [None]
  - TRANSIENT ISCHAEMIC ATTACK [None]
  - VASCULAR PSEUDOANEURYSM [None]
  - WOUND INFECTION PSEUDOMONAS [None]
